FAERS Safety Report 6383777-8 (Version None)
Quarter: 2009Q4

REPORT INFORMATION
  Report Type: 
  Country: None (occurrence: None)
  Receive Date: 20091001
  Receipt Date: 20090925
  Transmission Date: 20100525
  Serious: Yes (Other)
  Sender: FDA-Public Use
  Company Number: DE-JNJFOC-20090908657

PATIENT
  Sex: Female

DRUGS (4)
  1. TOPAMAX [Suspect]
     Indication: EPILEPSY
     Route: 048
  2. L-THYROX [Concomitant]
     Indication: HYPOTHYROIDISM
     Route: 065
  3. CLEXANE [Concomitant]
     Indication: HYPOTHYROIDISM
     Route: 065
  4. PANTOPRAZOL [Concomitant]
     Indication: HYPOTHYROIDISM
     Route: 065

REACTIONS (1)
  - DEAFNESS [None]
